FAERS Safety Report 24851031 (Version 3)
Quarter: 2025Q1

REPORT INFORMATION
  Report Type: Spontaneous
  Country: US (occurrence: US)
  Receive Date: 20250116
  Receipt Date: 20250220
  Transmission Date: 20250408
  Serious: No
  Sender: IPSEN BIOPHARMACEUTICALS, INC.
  Company Number: US-IPSEN Group, Research and Development-2025-00975

PATIENT
  Sex: Female

DRUGS (2)
  1. IQIRVO [Suspect]
     Active Substance: ELAFIBRANOR
     Indication: Primary biliary cholangitis
     Dosage: 80 MG 1 TIME A DAY
     Route: 048
     Dates: start: 202412
  2. OCALIVA [Concomitant]
     Active Substance: OBETICHOLIC ACID

REACTIONS (2)
  - Renal pain [Unknown]
  - Myalgia [Unknown]
